FAERS Safety Report 9094077 (Version 1)
Quarter: 2013Q1

REPORT INFORMATION
  Report Type: Spontaneous
  Country: ES (occurrence: ES)
  Receive Date: 20130218
  Receipt Date: 20130218
  Transmission Date: 20140127
  Serious: Yes (Other)
  Sender: FDA-Public Use
  Company Number: ES-ASTRAZENECA-2013SE09633

PATIENT
  Age: 56 Year
  Sex: Female

DRUGS (2)
  1. VIMOVO [Suspect]
     Indication: OSTEOARTHRITIS
     Dosage: 1 TABLET EVERY 12 HOURS
     Route: 048
     Dates: start: 20130201, end: 20130203
  2. RALOXIFENE [Concomitant]
     Dosage: CHRONIC

REACTIONS (5)
  - Eyelid oedema [Recovered/Resolved]
  - Back pain [Recovered/Resolved]
  - Face oedema [Recovered/Resolved]
  - Oliguria [Recovered/Resolved]
  - Oedema peripheral [Recovered/Resolved]
